FAERS Safety Report 6257598-0 (Version None)
Quarter: 2009Q3

REPORT INFORMATION
  Report Type: 
  Country: None (occurrence: None)
  Receive Date: 20090702
  Receipt Date: 20090616
  Transmission Date: 20100115
  Serious: Yes (Disabling)
  Sender: FDA-Public Use
  Company Number: 2009-0571

PATIENT
  Age: 67 Year
  Sex: Female

DRUGS (1)
  1. DYSPORT [Suspect]
     Indication: MUSCLE SPASTICITY
     Dosage: (1350 UNITS, SINGLE USE), INTRAMUSCULAR
     Route: 030
     Dates: start: 20081204, end: 20081204

REACTIONS (3)
  - COMPLEX REGIONAL PAIN SYNDROME [None]
  - NEUROMUSCULAR TOXICITY [None]
  - PAIN IN EXTREMITY [None]
